FAERS Safety Report 11636843 (Version 1)
Quarter: 2015Q4

REPORT INFORMATION
  Report Type: Spontaneous
  Country: US (occurrence: US)
  Receive Date: 20151016
  Receipt Date: 20151016
  Transmission Date: 20160304
  Serious: No
  Sender: FDA-Public Use
  Company Number: US-GALDERMA-US15005355

PATIENT
  Age: 48 Year
  Sex: Female

DRUGS (5)
  1. DERMALOGICA ULTRA CALMING SERUM CONCENTRATE [Concomitant]
     Indication: DRY SKIN PROPHYLAXIS
     Route: 061
  2. BARE MINERALS POWDER [Concomitant]
     Route: 061
  3. CERAVE LOTION CLEANSER [Concomitant]
     Indication: THERAPEUTIC SKIN CARE TOPICAL
     Route: 061
  4. SOOLANTRA [Suspect]
     Active Substance: IVERMECTIN
     Indication: ROSACEA
     Route: 061
     Dates: start: 201505
  5. DOXYCYCLINE. [Concomitant]
     Active Substance: DOXYCYCLINE
     Indication: ROSACEA
     Dosage: 40 MG

REACTIONS (2)
  - Condition aggravated [Recovered/Resolved]
  - Rosacea [Recovered/Resolved]

NARRATIVE: CASE EVENT DATE: 201505
